FAERS Safety Report 7657484-5 (Version None)
Quarter: 2011Q3

REPORT INFORMATION
  Report Type: 
  Country: None (occurrence: None)
  Receive Date: 20110804
  Receipt Date: 20110726
  Transmission Date: 20111222
  Serious: Yes (Hospitalization, Other)
  Sender: FDA-Public Use
  Company Number: ES-ASTRAZENECA-2011SE44728

PATIENT
  Age: 74 Year
  Sex: Female
  Weight: 70 kg

DRUGS (10)
  1. FUROSEMIDE [Interacting]
     Indication: HYPERTENSION
     Route: 048
     Dates: start: 20110613
  2. NEXIUM [Suspect]
     Indication: GASTROINTESTINAL HAEMORRHAGE
     Route: 048
     Dates: start: 20110613
  3. PLAVIX [Interacting]
     Indication: CEREBROVASCULAR ACCIDENT
     Route: 048
     Dates: start: 20110604
  4. ATORVASTATIN CALCIUM [Interacting]
     Indication: CEREBROVASCULAR ACCIDENT
     Route: 048
     Dates: start: 20110604, end: 20110623
  5. LISINOPRIL [Interacting]
     Indication: HYPERTENSION
     Route: 048
     Dates: start: 20110613
  6. KEPPRA [Interacting]
     Indication: CONVULSION
     Route: 048
     Dates: start: 20110604, end: 20110623
  7. LEVOTHYROXINE SODIUM [Interacting]
     Indication: HYPOPITUITARISM
     Route: 048
  8. HYDROCORTISONE [Interacting]
     Route: 048
  9. ASPIRIN [Interacting]
     Indication: CEREBROVASCULAR ACCIDENT
     Route: 048
     Dates: start: 20110604
  10. AMLODIPINE [Interacting]
     Indication: HYPERTENSION
     Route: 048
     Dates: start: 20110613

REACTIONS (2)
  - DRUG INTERACTION [None]
  - HEPATITIS TOXIC [None]
